FAERS Safety Report 16184298 (Version 1)
Quarter: 2019Q2

REPORT INFORMATION
  Report Type: Spontaneous
  Country: US (occurrence: US)
  Receive Date: 20190411
  Receipt Date: 20190411
  Transmission Date: 20190711
  Serious: No
  Sender: FDA-Public Use
  Company Number: US-PFIZER INC-2019147264

PATIENT
  Age: 51 Year
  Sex: Female
  Weight: 92.99 kg

DRUGS (2)
  1. SKELAXIN [Suspect]
     Active Substance: METAXALONE
     Indication: MUSCLE SPASMS
     Dosage: UNK (DOES NOT TAKE SKELAXIN EVERY 3-4 HOURS)
     Dates: start: 2018
  2. SKELAXIN [Suspect]
     Active Substance: METAXALONE
     Indication: MYALGIA
     Dosage: UNK, AS NEEDED (ONLY TAKES METAXALONE FOR INTENSE MUSCLE PAIN)
     Dates: start: 2018

REACTIONS (6)
  - Memory impairment [Not Recovered/Not Resolved]
  - Intentional product misuse [Unknown]
  - Abdominal pain lower [Recovering/Resolving]
  - Condition aggravated [Not Recovered/Not Resolved]
  - Bladder pain [Recovering/Resolving]
  - Feeling abnormal [Not Recovered/Not Resolved]

NARRATIVE: CASE EVENT DATE: 2018
